FAERS Safety Report 16270199 (Version 1)
Quarter: 2019Q2

REPORT INFORMATION
  Report Type: Spontaneous
  Country: US (occurrence: US)
  Receive Date: 20190329
  Receipt Date: 20190329
  Transmission Date: 20190711
  Serious: Yes (Hospitalization)
  Sender: FDA-Public Use
  Company Number: None

PATIENT
  Age: 79 Year
  Sex: Female
  Weight: 69.7 kg

DRUGS (2)
  1. IPILLIMUMAB [Suspect]
     Active Substance: IPILIMUMAB
     Indication: THYROID CANCER
     Dosage: Q6W
     Route: 042
  2. NIVOLUMAB [Suspect]
     Active Substance: NIVOLUMAB
     Indication: THYROID CANCER
     Dosage: ?          OTHER FREQUENCY:EVERY 2 WKS;?
     Route: 042
     Dates: start: 20180410

REACTIONS (2)
  - Arrhythmia [None]
  - Hyperthyroidism [None]

NARRATIVE: CASE EVENT DATE: 20190328
